FAERS Safety Report 19144315 (Version 4)
Quarter: 2021Q2

REPORT INFORMATION
  Report Type: Spontaneous
  Country: NL (occurrence: NL)
  Receive Date: 20210416
  Receipt Date: 20210623
  Transmission Date: 20210717
  Serious: Yes (Other)
  Sender: FDA-Public Use
  Company Number: NL-REGENERON PHARMACEUTICALS, INC.-2021-42274

PATIENT

DRUGS (5)
  1. ACETAZOLAMIDE. [Concomitant]
     Active Substance: ACETAZOLAMIDE
     Indication: PRODUCT USED FOR UNKNOWN INDICATION
     Dosage: 250 MG
     Dates: start: 20201016
  2. DUALKOPT [Concomitant]
     Active Substance: DORZOLAMIDE HYDROCHLORIDE\TIMOLOL MALEATE
     Indication: OCULAR HYPERTENSION
  3. EYLEA [Suspect]
     Active Substance: AFLIBERCEPT
     Indication: DIABETIC RETINOPATHY
     Dosage: UNK
  4. EYLEA [Suspect]
     Active Substance: AFLIBERCEPT
     Dosage: UNK
     Dates: start: 20200724, end: 20200724
  5. EYLEA [Suspect]
     Active Substance: AFLIBERCEPT
     Dosage: UNK
     Dates: start: 20201016, end: 20201016

REACTIONS (3)
  - Intraocular pressure increased [Recovered/Resolved]
  - Device use issue [Unknown]
  - Blindness transient [Recovered/Resolved]

NARRATIVE: CASE EVENT DATE: 20201016
